FAERS Safety Report 14780848 (Version 1)
Quarter: 2018Q2

REPORT INFORMATION
  Report Type: Spontaneous
  Country: US (occurrence: US)
  Receive Date: 20180419
  Receipt Date: 20180419
  Transmission Date: 20180711
  Serious: Yes (Hospitalization)
  Sender: FDA-Public Use
  Company Number: PHHY2018US062159

PATIENT
  Age: 39 Year
  Sex: Male

DRUGS (4)
  1. PREDNISONE. [Suspect]
     Active Substance: PREDNISONE
     Dosage: 125 MG, QD
     Route: 048
  2. PREDNISONE. [Suspect]
     Active Substance: PREDNISONE
     Indication: DIPLOPIA
     Dosage: 50 MG, QD
     Route: 048
  3. PREDNISONE. [Suspect]
     Active Substance: PREDNISONE
     Dosage: 100 MG, QD
     Route: 048
  4. PREDNISONE. [Suspect]
     Active Substance: PREDNISONE
     Indication: FACE OEDEMA
     Dosage: 100 MG, QD
     Route: 048

REACTIONS (7)
  - Photophobia [Unknown]
  - Strabismus [Unknown]
  - Lacrimation increased [Unknown]
  - Intraocular pressure increased [Unknown]
  - Orbital myositis [Unknown]
  - Hypertension [Unknown]
  - Product use in unapproved indication [Unknown]
